FAERS Safety Report 7246018-5 (Version None)
Quarter: 2011Q1

REPORT INFORMATION
  Report Type: 
  Country: None (occurrence: None)
  Receive Date: 20110126
  Receipt Date: 20110113
  Transmission Date: 20110831
  Serious: Yes (Other)
  Sender: FDA-Public Use
  Company Number: US-ELI_LILLY_AND_COMPANY-US201101003350

PATIENT
  Age: 41 Year
  Sex: Female
  Weight: 72.562 kg

DRUGS (3)
  1. LOTREL [Concomitant]
  2. EFFIENT [Suspect]
     Indication: ACUTE MYOCARDIAL INFARCTION
     Dosage: 10 MG, UNK
     Dates: start: 20101127, end: 20110103
  3. COREG [Concomitant]

REACTIONS (2)
  - COAGULOPATHY [None]
  - HAEMORRHAGE [None]
